FAERS Safety Report 7891853-3 (Version None)
Quarter: 2011Q4

REPORT INFORMATION
  Report Type: 
  Country: None (occurrence: None)
  Receive Date: 20111103
  Receipt Date: 20110810
  Transmission Date: 20120403
  Serious: No
  Sender: FDA-Public Use
  Company Number: US-AMGEN-USASP2011040798

PATIENT
  Age: 55 Year
  Sex: Female
  Weight: 72.562 kg

DRUGS (12)
  1. NEXIUM [Concomitant]
     Dosage: 20 MG, UNK
  2. PREDNISONE [Concomitant]
     Dosage: 1 MG, UNK
  3. SEROQUEL XR [Concomitant]
     Dosage: 25 MG, UNK
  4. PERCOCET [Concomitant]
     Dosage: 2.5 MG, UNK
  5. LAMOTRIGINE [Concomitant]
     Dosage: 25 MG, UNK
  6. METHOTREXATE [Concomitant]
     Dosage: UNK
  7. ALPRAZOLAM [Concomitant]
     Dosage: 05 MG, UNK
  8. FOLIC ACID [Concomitant]
     Dosage: 1 MG, UNK
  9. OXYCONTIN [Concomitant]
     Dosage: 10 MG, UNK
  10. ENBREL [Suspect]
     Indication: PRODUCT USED FOR UNKNOWN INDICATION
     Dosage: 50 MG, QWK
  11. CRESTOR [Concomitant]
     Dosage: 100 MG, UNK
  12. NIASPAN [Concomitant]
     Dosage: 500 MG, UNK

REACTIONS (1)
  - URINARY TRACT INFECTION [None]
